FAERS Safety Report 11158058 (Version 1)
Quarter: 2015Q2

REPORT INFORMATION
  Report Type: Spontaneous
  Country: NO (occurrence: None)
  Receive Date: 20150601
  Receipt Date: 20150601
  Transmission Date: 20150821
  Serious: Yes (Other)
  Sender: FDA-Public Use
  Company Number: ADR-2015-01054

PATIENT

DRUGS (1)
  1. LIORESAL [Suspect]
     Active Substance: BACLOFEN

REACTIONS (3)
  - Underdose [None]
  - Post procedural haematoma [None]
  - Drug withdrawal syndrome [None]

NARRATIVE: CASE EVENT DATE: 20150522
